FAERS Safety Report 14815716 (Version 2)
Quarter: 2018Q2

REPORT INFORMATION
  Report Type: Spontaneous
  Country: US (occurrence: US)
  Receive Date: 20180426
  Receipt Date: 20180628
  Transmission Date: 20180711
  Serious: Yes (Other)
  Sender: FDA-Public Use
  Company Number: US-GLAXOSMITHKLINE-US2018070932

PATIENT
  Sex: Female

DRUGS (9)
  1. TYLENOL [Concomitant]
     Active Substance: ACETAMINOPHEN
  2. AMLODIPINE [Concomitant]
     Active Substance: AMLODIPINE BESYLATE
  3. ALBUTEROL INHALER [Concomitant]
     Active Substance: ALBUTEROL
  4. INCRUSE ELLIPTA [Suspect]
     Active Substance: UMECLIDINIUM BROMIDE
     Indication: CHRONIC OBSTRUCTIVE PULMONARY DISEASE
     Dosage: 1 PUFF(S), QD
     Route: 055
     Dates: end: 20180423
  5. GLUCOSAMINE [Concomitant]
     Active Substance: GLUCOSAMINE
  6. LISINOPRIL. [Concomitant]
     Active Substance: LISINOPRIL
  7. COREG [Concomitant]
     Active Substance: CARVEDILOL
  8. ELIQUIS [Concomitant]
     Active Substance: APIXABAN
  9. VITAMIN D3 [Concomitant]
     Active Substance: CHOLECALCIFEROL

REACTIONS (3)
  - Burn oral cavity [Unknown]
  - Tongue erythema [Unknown]
  - Drug dose omission [Unknown]
